FAERS Safety Report 9425988 (Version 1)
Quarter: 2013Q3

REPORT INFORMATION
  Report Type: Spontaneous
  Country: CA (occurrence: CA)
  Receive Date: 20130730
  Receipt Date: 20130730
  Transmission Date: 20140515
  Serious: Yes (Other)
  Sender: FDA-Public Use
  Company Number: CA-PFIZER INC-2013192888

PATIENT
  Sex: Female

DRUGS (1)
  1. LIPITOR [Suspect]
     Indication: HIGH DENSITY LIPOPROTEIN INCREASED
     Dosage: 10 MG, 1X/DAY AT NIGHTTIME
     Dates: start: 2003, end: 201306

REACTIONS (6)
  - Cataract [Not Recovered/Not Resolved]
  - Eye swelling [Recovering/Resolving]
  - Vision blurred [Recovering/Resolving]
  - Photophobia [Recovering/Resolving]
  - Visual field defect [Recovering/Resolving]
  - Off label use [Recovered/Resolved]
